FAERS Safety Report 6255704-5 (Version None)
Quarter: 2009Q3

REPORT INFORMATION
  Report Type: 
  Country: None (occurrence: None)
  Receive Date: 20090701
  Receipt Date: 20090616
  Transmission Date: 20100115
  Serious: Yes (Death)
  Sender: FDA-Public Use
  Company Number: PPC200900083

PATIENT
  Age: 75 Year
  Sex: Female

DRUGS (2)
  1. VANCOMYCIN HYDROCHLORIDE [Suspect]
     Indication: PNEUMONIA
     Dosage: 1 GM, ONCE
  2. CEFEPIME [Suspect]
     Indication: PNEUMONIA
     Dosage: 2 GM, TWICE

REACTIONS (2)
  - SEPSIS [None]
  - STATUS EPILEPTICUS [None]
